FAERS Safety Report 9009160 (Version 1)
Quarter: 2013Q1

REPORT INFORMATION
  Report Type: Report from Study
  Country: JP (occurrence: JP)
  Receive Date: 20130111
  Receipt Date: 20130111
  Transmission Date: 20140127
  Serious: Yes (Other)
  Sender: FDA-Public Use
  Company Number: JP-009507513-2012SP018300

PATIENT
  Age: 57 Year
  Sex: Male
  Weight: 83 kg

DRUGS (17)
  1. PEGINTERFERON ALFA-2B [Suspect]
     Indication: CHRONIC HEPATITIS C
     Dosage: 1.5 ?G/KG, QW
     Route: 058
     Dates: start: 20120131, end: 20120206
  2. PEGINTERFERON ALFA-2B [Suspect]
     Dosage: 1.2 ?G/KG, QW
     Route: 058
     Dates: start: 20120207, end: 20120220
  3. REBETOL [Suspect]
     Indication: CHRONIC HEPATITIS C
     Dosage: 800 MG, QD
     Route: 048
     Dates: start: 20120131, end: 20120207
  4. TELAVIC [Suspect]
     Indication: CHRONIC HEPATITIS C
     Dosage: 2250 MG, QD
     Route: 048
     Dates: start: 20120131, end: 20120210
  5. JANUVIA TABLETS 50MG [Concomitant]
     Indication: DIABETES MELLITUS
     Dosage: 50 MG, QD
     Route: 048
     Dates: end: 20120206
  6. OLMETEC [Concomitant]
     Indication: HYPERTENSION
     Dosage: 20 MG, QD
     Route: 048
     Dates: end: 20120301
  7. EVAMYL [Concomitant]
     Indication: PROPHYLAXIS
     Dosage: 1 MG, QD
     Route: 048
  8. CONIEL [Concomitant]
     Indication: HYPERTENSION
     Dosage: 8 MG, QD
     Route: 048
     Dates: start: 20120131, end: 20120301
  9. MUCOSTA [Concomitant]
     Indication: PROPHYLAXIS
     Dosage: 100 MG QD/AS NEEDED
     Route: 048
     Dates: start: 20120131
  10. LOXONIN [Concomitant]
     Indication: PROPHYLAXIS
     Dosage: 60 MG/DAY AS NEEDED
     Route: 048
     Dates: start: 20120131
  11. GLACTIV [Concomitant]
     Indication: DIABETES MELLITUS
     Dosage: 50 MG, QD
     Route: 048
     Dates: start: 20120207, end: 20120301
  12. MENTAX [Concomitant]
     Indication: TINEA INFECTION
     Dosage: UNK UNK, QD
     Route: 061
     Dates: start: 20120210
  13. MYSER (CYCLOSERINE) [Concomitant]
     Indication: RASH
     Dosage: OINTMENT APPLIED SEVERAL TIMES A AY
     Route: 061
     Dates: start: 20120201
  14. ALLEGRA [Concomitant]
     Indication: RASH
     Dosage: 120 MG, QD
     Route: 048
     Dates: start: 20120202, end: 20120301
  15. CRAVIT [Concomitant]
     Indication: EYE DISCHARGE
     Dosage: OPTHALMIC SOLUTION FOR INCREASE IN EYE DISCHARGE
     Dates: start: 20120203
  16. POSTERISAN FORTE [Concomitant]
     Indication: PRODUCT USED FOR UNKNOWN INDICATION
     Dosage: UNK UNK, PRN
     Route: 061
     Dates: start: 20120206, end: 20120218
  17. MENTAX [Concomitant]
     Indication: TINEA INFECTION
     Dosage: UNK
     Route: 051
     Dates: start: 20120210

REACTIONS (2)
  - Blood uric acid increased [Recovered/Resolved]
  - Blood creatinine increased [Recovering/Resolving]
